FAERS Safety Report 8358055-8 (Version None)
Quarter: 2012Q2

REPORT INFORMATION
  Report Type: 
  Country: None (occurrence: None)
  Receive Date: 20120514
  Receipt Date: 20120503
  Transmission Date: 20120825
  Serious: Yes (Life-Threatening, Hospitalization)
  Sender: FDA-Public Use
  Company Number: ES-CELGENEUS-144-21880-12042709

PATIENT
  Sex: Male
  Weight: 100 kg

DRUGS (14)
  1. REVLIMID [Suspect]
     Dosage: 16 MILLIGRAM
     Route: 048
     Dates: start: 20120403, end: 20120422
  2. DEXAMETHASONE [Suspect]
     Route: 065
     Dates: start: 20120403, end: 20120417
  3. ASPIRIN [Concomitant]
     Indication: ANTICOAGULANT THERAPY
     Dosage: 250 MILLIGRAM
     Route: 048
     Dates: start: 20110616
  4. ACYCLOVIR [Concomitant]
     Indication: ANTIVIRAL PROPHYLAXIS
     Dosage: 800 MILLIGRAM
     Route: 048
     Dates: start: 20110616
  5. ALPRAZOLAM [Concomitant]
     Indication: ANXIETY
     Route: 048
     Dates: start: 20110728
  6. REVLIMID [Suspect]
     Indication: MULTIPLE MYELOMA
     Dosage: 25 MILLIGRAM
     Route: 048
     Dates: start: 20110616, end: 20110705
  7. CARFILZOMIB [Suspect]
     Route: 065
     Dates: start: 20110622, end: 20110701
  8. CARFILZOMIB [Suspect]
     Indication: MULTIPLE MYELOMA
     Route: 065
     Dates: start: 20110616, end: 20110617
  9. CARFILZOMIB [Suspect]
     Route: 065
     Dates: start: 20120403, end: 20120418
  10. DEXAMETHASONE [Suspect]
     Indication: MULTIPLE MYELOMA
     Route: 065
     Dates: start: 20110616, end: 20110707
  11. LEVOFLOXACIN [Concomitant]
     Indication: INFECTION PROPHYLAXIS
     Dosage: 500 MILLIGRAM
     Route: 048
     Dates: start: 20111212
  12. DEXAMETHASONE [Suspect]
     Route: 065
     Dates: start: 20110818, end: 20110908
  13. PRILOSEC [Concomitant]
     Indication: PROPHYLAXIS
     Dosage: 20 MILLIGRAM
     Route: 048
     Dates: start: 20110616
  14. LORAZEPAM [Concomitant]
     Indication: ANXIETY
     Route: 048
     Dates: start: 20110728

REACTIONS (1)
  - HYPOCALCAEMIA [None]
